FAERS Safety Report 16306782 (Version 2)
Quarter: 2021Q1

REPORT INFORMATION
  Report Type: Spontaneous
  Country: US (occurrence: US)
  Receive Date: 20190513
  Receipt Date: 20210217
  Transmission Date: 20210419
  Serious: Yes (Hospitalization, Other)
  Sender: FDA-Public Use
  Company Number: US-ASTRAZENECA-2019SE63703

PATIENT
  Age: 18200 Day
  Sex: Male

DRUGS (50)
  1. NEXIUM 24HR [Suspect]
     Active Substance: ESOMEPRAZOLE MAGNESIUM
     Indication: GASTROOESOPHAGEAL REFLUX DISEASE
     Dosage: 2014?DOES NOT RECALL
     Route: 048
     Dates: start: 2014
  2. FENTANYL SUBLIMATE [Concomitant]
  3. FUROSEMIDE. [Concomitant]
     Active Substance: FUROSEMIDE
     Indication: HYPERTENSION
     Dates: start: 2016, end: 2017
  4. MULTIVITAMIN [Concomitant]
     Active Substance: VITAMINS
  5. METOPROLOL TARTRATE. [Concomitant]
     Active Substance: METOPROLOL TARTRATE
  6. ONDANSETRON [Concomitant]
     Active Substance: ONDANSETRON
  7. AZATHIOPRINE. [Concomitant]
     Active Substance: AZATHIOPRINE
  8. CALCITRIOL. [Concomitant]
     Active Substance: CALCITRIOL
  9. DIAZEPAM. [Concomitant]
     Active Substance: DIAZEPAM
  10. CEFAZOLIN [Concomitant]
     Active Substance: CEFAZOLIN
     Indication: BACTERIAL INFECTION
     Dates: start: 2016
  11. ATORVASTATIN [Concomitant]
     Active Substance: ATORVASTATIN
     Indication: CHEST DISCOMFORT
     Dates: start: 2018
  12. ACETAMINOPHEN. [Concomitant]
     Active Substance: ACETAMINOPHEN
  13. INSULIN [Concomitant]
     Active Substance: INSULIN NOS
  14. ZOLPIDEM [Concomitant]
     Active Substance: ZOLPIDEM TARTRATE
  15. ISOSORBIDE. [Concomitant]
     Active Substance: ISOSORBIDE
  16. PROTONIX [Suspect]
     Active Substance: PANTOPRAZOLE SODIUM
     Indication: GASTROOESOPHAGEAL REFLUX DISEASE
     Route: 048
     Dates: start: 20090401
  17. DOXAZOSIN [Concomitant]
     Active Substance: DOXAZOSIN MESYLATE
  18. MYCOPHENOLIC ACID. [Concomitant]
     Active Substance: MYCOPHENOLIC ACID
  19. ENOXAPARIN [Concomitant]
     Active Substance: ENOXAPARIN
  20. CEFTRIAXONE. [Concomitant]
     Active Substance: CEFTRIAXONE
  21. AMPICILLIN [Concomitant]
     Active Substance: AMPICILLIN
  22. ASPIRIN. [Concomitant]
     Active Substance: ASPIRIN
     Indication: PAIN
  23. OXYCODONE [Concomitant]
     Active Substance: OXYCODONE
  24. NIFEDIPINE. [Concomitant]
     Active Substance: NIFEDIPINE
  25. TACROLIMUS. [Concomitant]
     Active Substance: TACROLIMUS
  26. HYDROMORPHONE [Concomitant]
     Active Substance: HYDROMORPHONE
  27. ATORVASTATIN [Concomitant]
     Active Substance: ATORVASTATIN
  28. TACROLIMUS. [Concomitant]
     Active Substance: TACROLIMUS
  29. PROMETHAZINE [Concomitant]
     Active Substance: PROMETHAZINE HYDROCHLORIDE
  30. PHENERGAN [Concomitant]
     Active Substance: PROMETHAZINE HYDROCHLORIDE
  31. LIDOCAINE. [Concomitant]
     Active Substance: LIDOCAINE
  32. PREDNISONE. [Concomitant]
     Active Substance: PREDNISONE
  33. NITROGLYCERIN. [Concomitant]
     Active Substance: NITROGLYCERIN
  34. VANCOMYCIN [Concomitant]
     Active Substance: VANCOMYCIN
  35. METOCLOPRAMIDE. [Concomitant]
     Active Substance: METOCLOPRAMIDE
  36. GABAPENTIN. [Concomitant]
     Active Substance: GABAPENTIN
  37. DIPHENHYDRAMINE. [Concomitant]
     Active Substance: DIPHENHYDRAMINE
  38. DARVOCET [Concomitant]
     Active Substance: ACETAMINOPHEN\PROPOXYPHENE HYDROCHLORIDE
  39. ERTAPENEM. [Concomitant]
     Active Substance: ERTAPENEM SODIUM
  40. NEXIUM [Suspect]
     Active Substance: ESOMEPRAZOLE MAGNESIUM
     Indication: GASTROOESOPHAGEAL REFLUX DISEASE
     Route: 048
     Dates: start: 200002, end: 201212
  41. PROTONIX [Suspect]
     Active Substance: PANTOPRAZOLE SODIUM
     Indication: GASTROOESOPHAGEAL REFLUX DISEASE
     Route: 065
     Dates: start: 200002, end: 201212
  42. LABETALOL [Concomitant]
     Active Substance: LABETALOL\LABETALOL HYDROCHLORIDE
  43. SODIUM CHLORIDE. [Concomitant]
     Active Substance: SODIUM CHLORIDE
  44. CEFAZOLIN [Concomitant]
     Active Substance: CEFAZOLIN
  45. MORPHINE [Concomitant]
     Active Substance: MORPHINE
  46. ISOSORBIDE MONONITRATE. [Concomitant]
     Active Substance: ISOSORBIDE MONONITRATE
  47. PIPERACILLIN. [Concomitant]
     Active Substance: PIPERACILLIN SODIUM
  48. ENOXAPARIN [Concomitant]
     Active Substance: ENOXAPARIN
  49. HEPARIN [Concomitant]
     Active Substance: HEPARIN SODIUM
  50. HEPARIN [Concomitant]
     Active Substance: HEPARIN SODIUM

REACTIONS (5)
  - Renal failure [Unknown]
  - End stage renal disease [Not Recovered/Not Resolved]
  - Hyperparathyroidism secondary [Unknown]
  - Chronic kidney disease [Not Recovered/Not Resolved]
  - Acute kidney injury [Not Recovered/Not Resolved]

NARRATIVE: CASE EVENT DATE: 20161222
